FAERS Safety Report 21731908 (Version 1)
Quarter: 2022Q4

REPORT INFORMATION
  Report Type: Other
  Country: JP (occurrence: JP)
  Receive Date: 20221215
  Receipt Date: 20221215
  Transmission Date: 20230112
  Serious: Yes (Hospitalization, Other)
  Sender: FDA-Public Use
  Company Number: JP-CHUGAI-A2020041578ROCHE

PATIENT
  Age: 61 Year

DRUGS (9)
  1. ATEZOLIZUMAB [Suspect]
     Active Substance: ATEZOLIZUMAB
     Indication: Non-small cell lung cancer
     Dosage: ONE COURSE?MOST RECENT DOSE ON 10/SEP/2020
     Route: 041
     Dates: start: 20200821, end: 20200910
  2. BEVACIZUMAB [Suspect]
     Active Substance: BEVACIZUMAB
     Indication: Non-small cell lung cancer
     Dosage: ONE COURSE
     Route: 041
     Dates: start: 20200821, end: 20200910
  3. CARBOPLATIN [Suspect]
     Active Substance: CARBOPLATIN
     Indication: Non-small cell lung cancer
     Dosage: ONE COURSE
     Route: 041
     Dates: start: 20200821, end: 20200910
  4. PACLITAXEL [Suspect]
     Active Substance: PACLITAXEL
     Indication: Non-small cell lung cancer
     Dosage: ONCE
     Route: 041
     Dates: start: 20200821, end: 20200910
  5. OXYCODONE HYDROCHLORIDE [Concomitant]
     Active Substance: OXYCODONE HYDROCHLORIDE
     Indication: Non-small cell lung cancer
     Route: 048
     Dates: start: 20200811
  6. APREPITANT [Concomitant]
     Active Substance: APREPITANT
     Indication: Prophylaxis
     Route: 048
     Dates: start: 20200821, end: 20200821
  7. APREPITANT [Concomitant]
     Active Substance: APREPITANT
     Route: 048
     Dates: start: 20200822, end: 20200823
  8. CALONAL [Concomitant]
     Active Substance: ACETAMINOPHEN
     Indication: Non-small cell lung cancer
     Route: 065
     Dates: start: 20200618
  9. OXYCODONE [Concomitant]
     Active Substance: OXYCODONE
     Indication: Non-small cell lung cancer
     Route: 065
     Dates: start: 20200829

REACTIONS (13)
  - Febrile neutropenia [Recovered/Resolved]
  - Constipation [Unknown]
  - Nausea [Unknown]
  - White blood cell count decreased [Unknown]
  - Neutrophil count decreased [Unknown]
  - Nausea [Unknown]
  - Fatigue [Unknown]
  - Alopecia [Unknown]
  - Rash [Unknown]
  - Skin exfoliation [Unknown]
  - Lymphocyte count decreased [Unknown]
  - Platelet count decreased [Unknown]
  - Anaemia [Unknown]

NARRATIVE: CASE EVENT DATE: 20200824
